FAERS Safety Report 19360093 (Version 3)
Quarter: 2022Q2

REPORT INFORMATION
  Report Type: Report from Study
  Country: US (occurrence: US)
  Receive Date: 20210601
  Receipt Date: 20220422
  Transmission Date: 20220720
  Serious: Yes (Other)
  Sender: FDA-Public Use
  Company Number: NVSC2021US115852

PATIENT
  Age: 67 Year
  Sex: Male
  Weight: 82.1 kg

DRUGS (1)
  1. ENTRESTO [Suspect]
     Active Substance: SACUBITRIL\VALSARTAN
     Indication: Cardiomyopathy
     Dosage: 1 DOSAGE FORM, UNKNOWN
     Route: 048
     Dates: start: 201705

REACTIONS (4)
  - Blindness [Unknown]
  - Cardiac ventricular thrombosis [Unknown]
  - Ejection fraction decreased [Unknown]
  - Product use in unapproved indication [Unknown]

NARRATIVE: CASE EVENT DATE: 20201201
